FAERS Safety Report 6517540-1 (Version None)
Quarter: 2009Q4

REPORT INFORMATION
  Report Type: 
  Country: None (occurrence: None)
  Receive Date: 20091224
  Receipt Date: 20091210
  Transmission Date: 20100525
  Serious: Yes (Death)
  Sender: FDA-Public Use
  Company Number: ES-PFIZER INC-2009308373

PATIENT
  Sex: Male
  Weight: 81 kg

DRUGS (8)
  1. SUNITINIB MALATE [Suspect]
     Indication: HEPATIC NEOPLASM MALIGNANT
     Dosage: 37.5 MG, UNK
     Route: 048
     Dates: start: 20091126, end: 20091206
  2. NICARDIPINE [Concomitant]
     Indication: HYPERTENSION
     Dosage: 30 MG, 1X/DAY
  3. DAFLON [Concomitant]
     Indication: CEREBROVASCULAR ACCIDENT
     Dosage: 500 MG, 1X/DAY
  4. ATENOLOL [Concomitant]
     Indication: HYPERTENSION
     Dosage: 50 MG, 3X/DAY
  5. SIMVASTATIN [Concomitant]
     Indication: HYPERCHOLESTEROLAEMIA
     Dosage: 10 MG, 1X/DAY
  6. GLIMEPIRIDE [Concomitant]
     Indication: DIABETES MELLITUS
     Dosage: 4 MG, 2X/DAY
  7. TRAMADOL [Concomitant]
     Indication: PAIN
     Dosage: 210 MG, 3X/DAY
  8. PARACETAMOL [Concomitant]
     Indication: PAIN
     Dosage: UNK MG, 3X/DAY

REACTIONS (1)
  - ABDOMINAL PAIN [None]
